FAERS Safety Report 21720669 (Version 1)
Quarter: 2022Q4

REPORT INFORMATION
  Report Type: Spontaneous
  Country: US (occurrence: US)
  Receive Date: 20221213
  Receipt Date: 20221213
  Transmission Date: 20230113
  Serious: No
  Sender: FDA-Public Use
  Company Number: US-AMGEN-USASP2022212646

PATIENT
  Age: 58 Year
  Sex: Male

DRUGS (5)
  1. OTEZLA [Suspect]
     Active Substance: APREMILAST
     Indication: Psoriatic arthropathy
     Dosage: 30 MILLIGRAM, QD
     Route: 048
     Dates: start: 20191014
  2. CIALIS [Concomitant]
     Active Substance: TADALAFIL
     Dosage: 10 MILLIGRAM
  3. IVERMECTIN [Concomitant]
     Active Substance: IVERMECTIN
     Dosage: 3 MILLIGRAM
  4. TADALAFIL [Concomitant]
     Active Substance: TADALAFIL
     Dosage: 5 MILLIGRAM
  5. HYDROXYZINE PAMOATE [Concomitant]
     Active Substance: HYDROXYZINE PAMOATE
     Dosage: 25 MILLIGRAM

REACTIONS (2)
  - Pain [Not Recovered/Not Resolved]
  - Off label use [Unknown]

NARRATIVE: CASE EVENT DATE: 20191014
